FAERS Safety Report 14977581 (Version 1)
Quarter: 2018Q2

REPORT INFORMATION
  Report Type: Spontaneous
  Country: FR (occurrence: FR)
  Receive Date: 20180606
  Receipt Date: 20180606
  Transmission Date: 20180711
  Serious: Yes (Life-Threatening, Hospitalization, Other)
  Sender: FDA-Public Use
  Company Number: FR-TEVA-2018-FR-901360

PATIENT
  Age: 13 Year
  Sex: Female
  Weight: 60 kg

DRUGS (3)
  1. IBUPROFENE SANDOZ [Suspect]
     Active Substance: IBUPROFEN
     Indication: PAIN
     Dosage: 2 DOSAGE FORMS DAILY;
     Route: 048
     Dates: start: 20170110, end: 20170116
  2. OMEPRAZOLE DELAYED RELEASE CAPSULES,10 MG, 20 MG AND 30 MG [Suspect]
     Active Substance: OMEPRAZOLE
     Indication: PRODUCT USED FOR UNKNOWN INDICATION
     Route: 048
     Dates: start: 20170110, end: 20170117
  3. IBUPROFENE SANDOZ [Suspect]
     Active Substance: IBUPROFEN
     Indication: LIGAMENT SPRAIN
     Route: 048
     Dates: start: 20170110, end: 20170117

REACTIONS (20)
  - Flank pain [Unknown]
  - Hypophosphataemia [Unknown]
  - Cholestasis [Recovering/Resolving]
  - Hepatic pain [Unknown]
  - Ocular discomfort [Not Recovered/Not Resolved]
  - Hyponatraemia [Unknown]
  - Pruritus [Recovered/Resolved]
  - Skin lesion [Unknown]
  - Skin disorder [Unknown]
  - Hepatitis [Recovering/Resolving]
  - Musculoskeletal chest pain [Unknown]
  - Drug administered to patient of inappropriate age [Unknown]
  - Drug dispensing error [Unknown]
  - Eye pain [Unknown]
  - Off label use [Unknown]
  - Liver injury [Recovering/Resolving]
  - Lymphopenia [Recovering/Resolving]
  - Stevens-Johnson syndrome [Recovering/Resolving]
  - Pain in extremity [Unknown]
  - Hypochloraemia [Unknown]

NARRATIVE: CASE EVENT DATE: 20170118
